FAERS Safety Report 5631135-3 (Version None)
Quarter: 2008Q1

REPORT INFORMATION
  Report Type: 
  Country: None (occurrence: None)
  Receive Date: 20080219
  Receipt Date: 20080214
  Transmission Date: 20080703
  Serious: Yes (Hospitalization)
  Sender: FDA-Public Use
  Company Number: GB-BOEHRINGER INGELHEIM GMBH, GERMANY-2006-UK-04453UK

PATIENT
  Sex: Male
  Weight: 94 kg

DRUGS (10)
  1. AGGRENOX [Suspect]
     Indication: CEREBROVASCULAR ACCIDENT PROPHYLAXIS
     Route: 048
  2. MICARDIS [Suspect]
     Indication: CEREBROVASCULAR ACCIDENT PROPHYLAXIS
     Route: 048
  3. CLOPIDOGREL [Suspect]
     Indication: CEREBROVASCULAR ACCIDENT PROPHYLAXIS
     Route: 048
  4. AMLODIPINE [Concomitant]
     Indication: CEREBROVASCULAR ACCIDENT PROPHYLAXIS
     Route: 048
  5. BENDROFLUMETHIAZIDE [Concomitant]
     Indication: CEREBROVASCULAR ACCIDENT PROPHYLAXIS
     Route: 048
  6. CITALOPRAM HYDROBROMIDE [Concomitant]
     Indication: DEPRESSION
     Route: 048
  7. DF118 [Concomitant]
     Indication: PAIN
     Dosage: 180MG MODERATE RELEASE
  8. GABAPENTIN [Concomitant]
     Indication: PAIN
     Route: 048
  9. FAMOTIDINE [Concomitant]
     Indication: GASTROOESOPHAGEAL REFLUX DISEASE
     Route: 048
  10. SIMVASTATIN [Concomitant]
     Indication: CEREBROVASCULAR ACCIDENT PROPHYLAXIS
     Route: 048

REACTIONS (3)
  - ABDOMINAL PAIN [None]
  - GASTROOESOPHAGEAL REFLUX DISEASE [None]
  - LEUKOPLAKIA [None]
